FAERS Safety Report 17171698 (Version 4)
Quarter: 2020Q1

REPORT INFORMATION
  Report Type: Spontaneous
  Country: PR (occurrence: US)
  Receive Date: 20191218
  Receipt Date: 20200131
  Transmission Date: 20200409
  Serious: Yes (Death, Hospitalization)
  Sender: FDA-Public Use
  Company Number: US-ACTELION-A-NJ2019-199376

PATIENT
  Age: 76 Year
  Sex: Female

DRUGS (4)
  1. TRACLEER [Suspect]
     Active Substance: BOSENTAN
     Dosage: 125 MG
     Route: 048
     Dates: start: 20130807
  2. TRACLEER [Suspect]
     Active Substance: BOSENTAN
     Indication: PULMONARY HYPERTENSION
     Dosage: 62.5 MG, BID
     Route: 048
  3. ZANTAC [Concomitant]
     Active Substance: RANITIDINE HYDROCHLORIDE
  4. REVATIO [Suspect]
     Active Substance: SILDENAFIL CITRATE
     Indication: PULMONARY HYPERTENSION
     Dosage: 20 MG, TID
     Route: 065
     Dates: start: 20130807

REACTIONS (7)
  - Scleroderma [Fatal]
  - Myocardial infarction [Unknown]
  - Pulmonary oedema [Unknown]
  - Cardio-respiratory arrest [Fatal]
  - Pulmonary arterial hypertension [Fatal]
  - Amyloidosis [Fatal]
  - Acute psychosis [Unknown]

NARRATIVE: CASE EVENT DATE: 20200102
